FAERS Safety Report 15342078 (Version 1)
Quarter: 2018Q3

REPORT INFORMATION
  Report Type: Spontaneous
  Country: US (occurrence: US)
  Receive Date: 20180902
  Receipt Date: 20180902
  Transmission Date: 20181010
  Serious: No
  Sender: FDA-Public Use
  Company Number: PHEH2018US035228

PATIENT
  Age: 69 Year
  Sex: Female
  Weight: 77.11 kg

DRUGS (2)
  1. AFINITOR [Suspect]
     Active Substance: EVEROLIMUS
     Indication: BREAST CANCER FEMALE
     Dosage: 10 MG, QD (STOPPED MED FOR 2 WEEKS AND DECREASE DOSE TO 5MG)
     Route: 065
     Dates: start: 20180803, end: 20180815
  2. AFINITOR [Suspect]
     Active Substance: EVEROLIMUS
     Dosage: 5 MG, QD
     Route: 048

REACTIONS (4)
  - Sensitivity of teeth [Recovered/Resolved]
  - Toothache [Recovered/Resolved]
  - Abdominal pain upper [Not Recovered/Not Resolved]
  - Diarrhoea [Not Recovered/Not Resolved]

NARRATIVE: CASE EVENT DATE: 20180804
